FAERS Safety Report 10385832 (Version 2)
Quarter: 2014Q3

REPORT INFORMATION
  Report Type: Spontaneous
  Country: US (occurrence: US)
  Receive Date: 20140814
  Receipt Date: 20140904
  Transmission Date: 20150326
  Serious: No
  Sender: FDA-Public Use
  Company Number: US-GILEAD-2014-0111974

PATIENT
  Age: 55 Year
  Sex: Female

DRUGS (3)
  1. REMODULIN [Concomitant]
     Active Substance: TREPROSTINIL
  2. LETAIRIS [Suspect]
     Active Substance: AMBRISENTAN
     Indication: PRODUCT USED FOR UNKNOWN INDICATION
     Dosage: 10 MG, QD
     Route: 065
     Dates: start: 20140408
  3. WARFARIN [Concomitant]
     Active Substance: WARFARIN

REACTIONS (6)
  - Diarrhoea [Unknown]
  - Furuncle [Unknown]
  - Abdominal discomfort [Unknown]
  - Constipation [Unknown]
  - Feeling abnormal [Unknown]
  - Unevaluable event [Unknown]
